FAERS Safety Report 5390770-0 (Version None)
Quarter: 2007Q3

REPORT INFORMATION
  Report Type: 
  Country: None (occurrence: None)
  Receive Date: 20070716
  Receipt Date: 20070705
  Transmission Date: 20080115
  Serious: Yes (Other)
  Sender: FDA-Public Use
  Company Number: CHNY2007GB02450

PATIENT
  Age: 40 Year
  Sex: Female
  Weight: 65 kg

DRUGS (4)
  1. NICOTINE [Suspect]
     Indication: SMOKING CESSATION THERAPY
     Dosage: 2 MG, PRN,
     Dates: start: 20070305, end: 20070620
  2. CLOTRIMAZOLE [Concomitant]
  3. LEVOTHYROXINE SODIUM [Concomitant]
  4. SERTRALINE [Concomitant]

REACTIONS (3)
  - DIARRHOEA HAEMORRHAGIC [None]
  - PROCTITIS [None]
  - RECTAL HAEMORRHAGE [None]
